FAERS Safety Report 5870282-8 (Version None)
Quarter: 2008Q3

REPORT INFORMATION
  Report Type: 
  Country: None (occurrence: None)
  Receive Date: 20080904
  Receipt Date: 20070816
  Transmission Date: 20090109
  Serious: No
  Sender: FDA-Public Use
  Company Number: US-BRISTOL-MYERS SQUIBB COMPANY-13882113

PATIENT
  Age: 61 Year
  Sex: Male

DRUGS (5)
  1. PERFLUTREN [Suspect]
     Dosage: 1 VIAL DILUTED WITH 8CC (5CC TOTAL VALUE)
     Route: 042
     Dates: start: 20070726
  2. LOTENSIN [Concomitant]
  3. PRAVACHOL [Concomitant]
  4. BONIVA [Concomitant]
  5. ASPIRIN [Concomitant]

REACTIONS (1)
  - BACK PAIN [None]
